FAERS Safety Report 10913701 (Version 1)
Quarter: 2015Q1

REPORT INFORMATION
  Report Type: Spontaneous
  Country: US (occurrence: None)
  Receive Date: 20150311
  Receipt Date: 20150311
  Transmission Date: 20150721
  Serious: No
  Sender: FDA-Public Use
  Company Number: None

PATIENT
  Age: 21 Year
  Sex: Female
  Weight: 52.16 kg

DRUGS (5)
  1. TAMIFLU [Suspect]
     Active Substance: OSELTAMIVIR PHOSPHATE
     Indication: INFLUENZA
     Route: 048
     Dates: start: 20150208, end: 20150212
  2. MULTIVITAMIN [Concomitant]
     Active Substance: VITAMINS
  3. VITAMIN D [Concomitant]
     Active Substance: CHOLECALCIFEROL
  4. ALLEGRA [Concomitant]
     Active Substance: FEXOFENADINE HYDROCHLORIDE
  5. FISH OIL [Concomitant]
     Active Substance: FISH OIL

REACTIONS (12)
  - Abdominal discomfort [None]
  - Dizziness [None]
  - Blood urine present [None]
  - Back pain [None]
  - Vomiting [None]
  - Renal pain [None]
  - Nausea [None]
  - Hypophagia [None]
  - Nephrolithiasis [None]
  - Mobility decreased [None]
  - Food intolerance [None]
  - Chromaturia [None]

NARRATIVE: CASE EVENT DATE: 20150212
